FAERS Safety Report 18896213 (Version 2)
Quarter: 2025Q4

REPORT INFORMATION
  Report Type: Spontaneous
  Country: EU (occurrence: EU)
  Receive Date: 20210216
  Receipt Date: 20251226
  Transmission Date: 20260118
  Serious: Yes (Hospitalization, Other)
  Sender: AUROBINDO
  Company Number: EU-MLMSERVICE-20210204-2701385-1

PATIENT
  Age: 64 Year
  Sex: Male

DRUGS (2)
  1. CAPECITABINE [Suspect]
     Active Substance: CAPECITABINE
     Indication: Colorectal adenocarcinoma
     Dosage: 1 DOSAGE FORM IN TOTAL (FIRST AND ONLY DOSE OF CHEMOTHERAPY)
     Route: 065
  2. RALTITREXED [Concomitant]
     Active Substance: RALTITREXED
     Indication: Colorectal adenocarcinoma
     Dosage: UNK
     Route: 065

REACTIONS (4)
  - Dysarthria [Recovered/Resolved]
  - Dysmetria [Recovered/Resolved]
  - Ataxia [Recovered/Resolved]
  - Neurotoxicity [Recovered/Resolved]
